FAERS Safety Report 15067856 (Version 2)
Quarter: 2018Q2

REPORT INFORMATION
  Report Type: Spontaneous
  Country: IT (occurrence: IT)
  Receive Date: 20180626
  Receipt Date: 20180628
  Transmission Date: 20180711
  Serious: Yes (Life-Threatening, Hospitalization, Other)
  Sender: FDA-Public Use
  Company Number: IT-PFIZER INC-2018254609

PATIENT
  Age: 43 Year
  Sex: Male

DRUGS (3)
  1. CYTARABINE. [Suspect]
     Active Substance: CYTARABINE
     Indication: ACUTE MYELOID LEUKAEMIA
     Dosage: UNK
  2. DAUNORUBICIN HCL [Suspect]
     Active Substance: DAUNORUBICIN HYDROCHLORIDE
     Indication: ACUTE MYELOID LEUKAEMIA
     Dosage: UNK
  3. ETOPOSIDE. [Suspect]
     Active Substance: ETOPOSIDE
     Indication: ACUTE MYELOID LEUKAEMIA
     Dosage: UNK

REACTIONS (10)
  - Abscess intestinal [Unknown]
  - Neutropenia [Recovered/Resolved]
  - Visceral congestion [Unknown]
  - Visceral oedema [Unknown]
  - Mesenteric abscess [Unknown]
  - Haemodynamic instability [Unknown]
  - Bronchopulmonary aspergillosis [Recovered/Resolved]
  - Small intestinal perforation [Unknown]
  - Melaena [Unknown]
  - Anaemia [Unknown]
